FAERS Safety Report 17038318 (Version 1)
Quarter: 2019Q4

REPORT INFORMATION
  Report Type: Spontaneous
  Country: US (occurrence: US)
  Receive Date: 20191115
  Receipt Date: 20191115
  Transmission Date: 20200122
  Serious: Yes (Other)
  Sender: FDA-Public Use
  Company Number: US-TORRENT-00007989

PATIENT

DRUGS (1)
  1. LOSARTAN. [Suspect]
     Active Substance: LOSARTAN
     Indication: PRODUCT USED FOR UNKNOWN INDICATION
     Dosage: OVER 60 DAYS
     Dates: start: 201902

REACTIONS (5)
  - Headache [Unknown]
  - Dizziness [Unknown]
  - Syncope [Unknown]
  - Economic problem [Unknown]
  - Pain [Unknown]
